FAERS Safety Report 6874653-2 (Version None)
Quarter: 2010Q3

REPORT INFORMATION
  Report Type: 
  Country: None (occurrence: None)
  Receive Date: 20100722
  Receipt Date: 20100716
  Transmission Date: 20110219
  Serious: Yes (Other)
  Sender: FDA-Public Use
  Company Number: 2010SP035719

PATIENT
  Age: 47 Year
  Sex: Female
  Weight: 112.0385 kg

DRUGS (8)
  1. DR. SCHOLL'S FUNGAL NAIL REVITALIZER SYSTEM (NO ACTIVE INGREDIENT) [Suspect]
     Indication: ONYCHOMYCOSIS
     Dosage: BID; TOP
     Route: 061
     Dates: start: 20100401
  2. INSULIN SUSPENSION [Concomitant]
  3. REGULAR INSULIN [Concomitant]
  4. SEVELAMER [Concomitant]
  5. TOPROL-XL [Concomitant]
  6. CLONIDINE [Concomitant]
  7. PROTONIX [Concomitant]
  8. LASIX [Concomitant]

REACTIONS (9)
  - CONDITION AGGRAVATED [None]
  - HYPOAESTHESIA [None]
  - INFECTION [None]
  - OEDEMA PERIPHERAL [None]
  - ONYCHOMYCOSIS [None]
  - PAIN IN EXTREMITY [None]
  - PURULENT DISCHARGE [None]
  - REFUSAL OF TREATMENT BY PATIENT [None]
  - SKIN DISCOLOURATION [None]
